FAERS Safety Report 17015781 (Version 1)
Quarter: 2019Q4

REPORT INFORMATION
  Report Type: Spontaneous
  Country: CN (occurrence: CN)
  Receive Date: 20191111
  Receipt Date: 20191111
  Transmission Date: 20200122
  Serious: Yes (Other)
  Sender: FDA-Public Use
  Company Number: CN-ROCHE-2456888

PATIENT
  Age: 50 Year
  Sex: Female
  Weight: 50.2 kg

DRUGS (6)
  1. SODIUM CHLORIDE. [Concomitant]
     Active Substance: SODIUM CHLORIDE
     Dosage: SOLVENT FOR TRASTUZUMAB
     Route: 041
     Dates: start: 20190929
  2. HERCEPTIN [Suspect]
     Active Substance: TRASTUZUMAB
     Indication: CHEMOTHERAPY
     Route: 041
     Dates: start: 20190929
  3. PACLITAXEL LIPOSOME [Suspect]
     Active Substance: PACLITAXEL
     Indication: CHEMOTHERAPY
     Route: 041
     Dates: start: 20190929
  4. PACLITAXEL LIPOSOME [Suspect]
     Active Substance: PACLITAXEL
     Indication: CANCER SURGERY
  5. GLUCOSE [Concomitant]
     Active Substance: DEXTROSE
     Dosage: SOLVENT FOR PACLITAXEL LIPOSOME FOR INJECTION
     Route: 041
     Dates: start: 20190929
  6. HERCEPTIN [Suspect]
     Active Substance: TRASTUZUMAB
     Indication: CANCER SURGERY

REACTIONS (1)
  - Bone marrow failure [Recovered/Resolved]

NARRATIVE: CASE EVENT DATE: 20191020
